FAERS Safety Report 20949764 (Version 2)
Quarter: 2023Q2

REPORT INFORMATION
  Report Type: Report from Study
  Country: US (occurrence: US)
  Receive Date: 20220613
  Receipt Date: 20230524
  Transmission Date: 20230722
  Serious: Yes (Hospitalization)
  Sender: FDA-Public Use
  Company Number: US-ARGENX-2022-ARGX-US000907

PATIENT
  Sex: Male
  Weight: 70 kg

DRUGS (1)
  1. VYVGART [Suspect]
     Active Substance: EFGARTIGIMOD ALFA-FCAB
     Indication: Myasthenia gravis
     Dosage: UNK
     Dates: start: 20220427

REACTIONS (5)
  - Dyspnoea [Unknown]
  - Hypoxia [Unknown]
  - Back pain [Unknown]
  - Blood glucose decreased [Unknown]
  - Therapeutic response delayed [Unknown]
